FAERS Safety Report 6819555-2 (Version None)
Quarter: 2010Q3

REPORT INFORMATION
  Report Type: 
  Country: None (occurrence: None)
  Receive Date: 20100707
  Receipt Date: 20100628
  Transmission Date: 20110219
  Serious: Yes (Hospitalization)
  Sender: FDA-Public Use
  Company Number: DE-ASTRAZENECA-2010SE31228

PATIENT
  Age: 64 Year
  Sex: Female
  Weight: 110 kg

DRUGS (3)
  1. METOPROLOL SUCCINATE [Suspect]
     Route: 048
  2. MULTAQ [Suspect]
     Indication: ATRIAL FIBRILLATION
     Dosage: 1-2 DAILY
     Route: 048
     Dates: start: 20100205, end: 20100309
  3. FALITHROM [Concomitant]
     Route: 048

REACTIONS (5)
  - ANXIETY [None]
  - EXTRASYSTOLES [None]
  - NERVOUSNESS [None]
  - SINUS BRADYCARDIA [None]
  - VENTRICULAR EXTRASYSTOLES [None]
